FAERS Safety Report 26072744 (Version 1)
Quarter: 2025Q4

REPORT INFORMATION
  Report Type: Spontaneous
  Country: EU (occurrence: EU)
  Receive Date: 20251121
  Receipt Date: 20251121
  Transmission Date: 20260118
  Serious: Yes (Other)
  Sender: GLAXOSMITHKLINE
  Company Number: None

PATIENT
  Age: 76 Year
  Sex: Female

DRUGS (4)
  1. LAMOTRIGINE [Suspect]
     Active Substance: LAMOTRIGINE
     Indication: Depression
     Dosage: 100 MG, BID
  2. Xerodent [Concomitant]
     Indication: Product used for unknown indication
     Dosage: UNK (1-6/DAY) (28.6 MG / 0.25 MG)
     Route: 065
  3. IMOVANE [Concomitant]
     Active Substance: ZOPICLONE
     Indication: Product used for unknown indication
     Dosage: 5 MG, QD
     Route: 065
  4. DELIPAM [Concomitant]
     Indication: Product used for unknown indication
     Dosage: 5 MG
     Route: 065

REACTIONS (9)
  - Hepatic failure [Recovering/Resolving]
  - Pruritus [Unknown]
  - Sleep disorder [Unknown]
  - Diarrhoea [Unknown]
  - General physical health deterioration [Unknown]
  - Depressed mood [Unknown]
  - Cough [Unknown]
  - Fatigue [Unknown]
  - Irritability [Unknown]

NARRATIVE: CASE EVENT DATE: 20250801
